FAERS Safety Report 6734036-2 (Version None)
Quarter: 2010Q2

REPORT INFORMATION
  Report Type: 
  Country: None (occurrence: None)
  Receive Date: 20100520
  Receipt Date: 20100512
  Transmission Date: 20101027
  Serious: Yes (Hospitalization)
  Sender: FDA-Public Use
  Company Number: US-AMGEN-KDL404419

PATIENT
  Sex: Male
  Weight: 71.3 kg

DRUGS (10)
  1. PROCRIT [Suspect]
     Indication: MYELODYSPLASTIC SYNDROME
     Route: 058
     Dates: start: 20091102
  2. HEPATITIS A VACCINE [Concomitant]
     Route: 030
  3. NEUPOGEN [Concomitant]
     Indication: DRUG USE FOR UNKNOWN INDICATION
     Dates: start: 20091116
  4. REVLIMID [Concomitant]
     Dates: start: 20091116
  5. HYDREA [Concomitant]
     Dates: end: 20091101
  6. TYLENOL-500 [Concomitant]
  7. LASIX [Concomitant]
  8. PRILOSEC [Concomitant]
  9. IRON [Concomitant]
     Route: 048
  10. COLCHICINE [Concomitant]

REACTIONS (3)
  - HEPATITIS A [None]
  - JOINT EFFUSION [None]
  - THERAPEUTIC RESPONSE DECREASED [None]
